FAERS Safety Report 8399434-2 (Version None)
Quarter: 2012Q2

REPORT INFORMATION
  Report Type: 
  Country: None (occurrence: None)
  Receive Date: 20120531
  Receipt Date: 20120520
  Transmission Date: 20120825
  Serious: No
  Sender: FDA-Public Use
  Company Number: US-ASTRAZENECA-2012SE32697

PATIENT
  Age: 51 Year
  Sex: Male
  Weight: 89.8 kg

DRUGS (6)
  1. SEROQUEL XR [Suspect]
     Indication: BIPOLAR DISORDER
     Route: 048
     Dates: start: 20120506
  2. ADVAIR DISKUS 100/50 [Concomitant]
     Indication: CHRONIC OBSTRUCTIVE PULMONARY DISEASE
  3. IBUPROFEN [Concomitant]
     Indication: BACK PAIN
  4. ZYRTEC [Concomitant]
     Indication: HYPERSENSITIVITY
  5. CLARITIN [Concomitant]
     Indication: HYPERSENSITIVITY
  6. FLONASE [Concomitant]
     Indication: CHRONIC OBSTRUCTIVE PULMONARY DISEASE

REACTIONS (3)
  - PANIC ATTACK [None]
  - SOMNOLENCE [None]
  - WEIGHT INCREASED [None]
